FAERS Safety Report 18013998 (Version 2)
Quarter: 2020Q3

REPORT INFORMATION
  Report Type: Spontaneous
  Country: US (occurrence: US)
  Receive Date: 20200713
  Receipt Date: 20200716
  Transmission Date: 20201103
  Serious: Yes (Hospitalization)
  Sender: FDA-Public Use
  Company Number: US-009507513-2007USA003087

PATIENT
  Age: 29 Year
  Sex: Female

DRUGS (7)
  1. VINCRISTINE [Suspect]
     Active Substance: VINCRISTINE
     Indication: ACUTE LYMPHOCYTIC LEUKAEMIA
     Dosage: 2 MG INTRAVENOUSLY ON DAYS 4 AND 11, APPROXIMATELY EVERY 21 DAYS (CYCLICAL)
     Route: 042
  2. CANCIDAS [Suspect]
     Active Substance: CASPOFUNGIN ACETATE
     Dosage: UNK
     Dates: end: 201508
  3. OFATUMUMAB [Suspect]
     Active Substance: OFATUMUMAB
     Dosage: 2000 MG, APPROXIMATELY EVERY 21 DAYS (CYCLICAL) (ON DAYS 1 AND 11 OF COURSES ONE AND THREE AND ON DA
     Route: 042
  4. DEXAMETHASONE. [Suspect]
     Active Substance: DEXAMETHASONE
     Indication: ACUTE LYMPHOCYTIC LEUKAEMIA
     Dosage: 40 MG, DAILY ON DAYS 1?4 AND 11?14, APPROXIMATELY EVERY 21 DAYS (CYCLICAL)
     Route: 042
  5. OFATUMUMAB [Suspect]
     Active Substance: OFATUMUMAB
     Indication: ACUTE LYMPHOCYTIC LEUKAEMIA
     Dosage: 300 MG, ON DAYS 1 OF COURSE ONE
     Route: 042
  6. DOXORUBICIN [Suspect]
     Active Substance: DOXORUBICIN
     Indication: ACUTE LYMPHOCYTIC LEUKAEMIA
     Dosage: 50 MG/ M^2, APPROXIMATELY EVERY 21 DAYS (CYCLICAL),  OVER 24 H ON DAY 4
     Route: 042
  7. CYCLOPHOSPHAMIDE. [Suspect]
     Active Substance: CYCLOPHOSPHAMIDE
     Indication: ACUTE LYMPHOCYTIC LEUKAEMIA
     Dosage: ON COURSES ONE, THREE, FIVE, AND SEVEN, 300 MG/M^2 OVER 3 H EVERY 12 H FOR SIX DOSES ON DAY 1?3, APP
     Route: 042

REACTIONS (1)
  - Alanine aminotransferase increased [Recovering/Resolving]

NARRATIVE: CASE EVENT DATE: 20150813
